FAERS Safety Report 5645705-X (Version None)
Quarter: 2008Q1

REPORT INFORMATION
  Report Type: 
  Country: None (occurrence: None)
  Receive Date: 20080229
  Receipt Date: 20080204
  Transmission Date: 20080703
  Serious: No
  Sender: FDA-Public Use
  Company Number: US-BOEHRINGER INGELHEIM GMBH, GERMANY-2008-BP-01693BP

PATIENT
  Age: 7 Year
  Sex: Male

DRUGS (1)
  1. CATAPRES-TTS-1 [Suspect]
     Route: 061

REACTIONS (7)
  - DIZZINESS [None]
  - EYE DISORDER [None]
  - FEELING JITTERY [None]
  - FLUSHING [None]
  - INSOMNIA [None]
  - NERVOUSNESS [None]
  - SKIN IRRITATION [None]
